FAERS Safety Report 6793019-7 (Version None)
Quarter: 2010Q2

REPORT INFORMATION
  Report Type: 
  Country: None (occurrence: None)
  Receive Date: 20100624
  Receipt Date: 20081126
  Transmission Date: 20101027
  Serious: Yes (Other)
  Sender: FDA-Public Use
  Company Number: US-PFIZER INC-2008100380

PATIENT
  Sex: Male
  Weight: 90.7 kg

DRUGS (2)
  1. GEODON [Suspect]
     Indication: ANXIETY
     Dosage: DAILY
     Dates: start: 20080401
  2. LAMICTAL [Concomitant]

REACTIONS (1)
  - DIABETES MELLITUS [None]
